FAERS Safety Report 6010224-8 (Version None)
Quarter: 2008Q4

REPORT INFORMATION
  Report Type: 
  Country: None (occurrence: None)
  Receive Date: 20081218
  Receipt Date: 20071214
  Transmission Date: 20090506
  Serious: No
  Sender: FDA-Public Use
  Company Number: A0699068A

PATIENT
  Age: 61 Year
  Sex: Male

DRUGS (4)
  1. FLONASE [Suspect]
     Indication: MULTIPLE ALLERGIES
     Dosage: 2SPR TWICE PER DAY
     Route: 045
     Dates: start: 20010101, end: 20060101
  2. FLUTICASONE FUROATE [Suspect]
     Indication: MULTIPLE ALLERGIES
     Dosage: 2SPR TWICE PER DAY
     Route: 045
     Dates: start: 20060101, end: 20071203
  3. ADVAIR DISKUS 500/50 [Concomitant]
  4. PRO-AIR [Concomitant]

REACTIONS (1)
  - DRUG INEFFECTIVE [None]
